FAERS Safety Report 24710371 (Version 1)
Quarter: 2024Q4

REPORT INFORMATION
  Report Type: Report from Study
  Country: NL (occurrence: NL)
  Receive Date: 20241209
  Receipt Date: 20241209
  Transmission Date: 20250114
  Serious: Yes (Other)
  Sender: ABBVIE
  Company Number: NL-ABBVIE-6034206

PATIENT
  Age: 61 Year
  Sex: Male

DRUGS (6)
  1. CARBIDOPA\LEVODOPA [Suspect]
     Active Substance: CARBIDOPA\LEVODOPA
     Indication: Parkinson^s disease
     Route: 050
     Dates: start: 20200921
  2. CARBIDOPA\LEVODOPA [Suspect]
     Active Substance: CARBIDOPA\LEVODOPA
     Dosage: NIGHT PUMP, EXTRA DOSAGE:1.00 ML, NIGHT CONTINUOUS DOSAGE: 2.1 (ML/H), THERAPY DURATION: REMAINS ...
     Route: 050
     Dates: start: 20241114
  3. CARBIDOPA\LEVODOPA [Suspect]
     Active Substance: CARBIDOPA\LEVODOPA
     Dosage: DAY PUMP, MORNING DOSAGE:11.8ML, CONTINUOUS DOSAGE: 4.2 ML, EXTRA DOSAGE: 3.4 ML, THERAPY DURATIO...
     Route: 050
     Dates: start: 20240809, end: 20241114
  4. CARBIDOPA AND LEVODOPA [Concomitant]
     Active Substance: CARBIDOPA\LEVODOPA
     Indication: Parkinson^s disease
     Dosage: 1XPD AFTER SHUTTING DOWN PUMP?LEVODOPA/CARBIDOPA RETARD 250MG
     Route: 048
     Dates: start: 20200922
  5. ROPINIROLE [Concomitant]
     Active Substance: ROPINIROLE
     Indication: Parkinson^s disease
     Route: 048
  6. AMITRIPTYLINE [Concomitant]
     Active Substance: AMITRIPTYLINE
     Indication: Parkinson^s disease
     Dosage: 2XPD 25MG
     Route: 048

REACTIONS (2)
  - Terminal state [Not Recovered/Not Resolved]
  - Bedridden [Not Recovered/Not Resolved]
